FAERS Safety Report 5771202-7 (Version None)
Quarter: 2008Q2

REPORT INFORMATION
  Report Type: 
  Country: None (occurrence: None)
  Receive Date: 20080613
  Receipt Date: 20080528
  Transmission Date: 20081010
  Serious: No
  Sender: FDA-Public Use
  Company Number: US-ABBOTT-08P-163-0454924-00

PATIENT
  Sex: Female
  Weight: 63.56 kg

DRUGS (3)
  1. HUMIRA [Suspect]
     Indication: PSORIASIS
     Route: 058
     Dates: start: 20080507
  2. TOPICAL MEDICAL CREAM [Concomitant]
     Indication: PSORIASIS
     Route: 061
  3. OVER THE COUNTER CREAM [Concomitant]
     Indication: PSORIASIS
     Route: 061

REACTIONS (4)
  - INJECTION SITE BRUISING [None]
  - INJECTION SITE URTICARIA [None]
  - PRURITUS [None]
  - URTICARIA [None]
